FAERS Safety Report 22291531 (Version 1)
Quarter: 2023Q2

REPORT INFORMATION
  Report Type: Spontaneous
  Country: US (occurrence: US)
  Receive Date: 20230506
  Receipt Date: 20230506
  Transmission Date: 20230722
  Serious: No
  Sender: FDA-Public Use
  Company Number: US-ABBVIE-4735703

PATIENT
  Age: 64 Year
  Sex: Female
  Weight: 56.699 kg

DRUGS (6)
  1. HUMIRA [Suspect]
     Active Substance: ADALIMUMAB
     Indication: Crohn^s disease
     Dosage: STRENGTH: 40MG
     Route: 058
     Dates: start: 202211
  2. METOPROLOL [Concomitant]
     Active Substance: METOPROLOL
     Indication: Blood pressure measurement
  3. vital proteins collagen peptides [Concomitant]
     Indication: Supplementation therapy
  4. hair skin and nails [Concomitant]
     Indication: Supplementation therapy
  5. IRBESARTAN [Concomitant]
     Active Substance: IRBESARTAN
     Indication: Blood pressure measurement
  6. DHA and EPA [Concomitant]
     Indication: Supplementation therapy

REACTIONS (1)
  - Injection site haemorrhage [Recovered/Resolved]

NARRATIVE: CASE EVENT DATE: 20230419
